FAERS Safety Report 16651336 (Version 1)
Quarter: 2019Q3

REPORT INFORMATION
  Report Type: Spontaneous
  Country: BE (occurrence: BE)
  Receive Date: 20190731
  Receipt Date: 20190731
  Transmission Date: 20191004
  Serious: Yes (Hospitalization)
  Sender: FDA-Public Use
  Company Number: BE-TEVA-2019-BE-1085554

PATIENT
  Age: 56 Year
  Sex: Male

DRUGS (18)
  1. TEMESTA [Concomitant]
     Indication: NAUSEA
     Dosage: 2.5 MILLIGRAM DAILY;
     Route: 048
     Dates: start: 20190507
  2. 5-FLUOROURACIL [Suspect]
     Active Substance: FLUOROURACIL
     Dosage: 2400 MG/M2 DAILY; CONTINUOUS INFUSION OVER 46-48 HOURS
     Route: 042
     Dates: start: 20181211
  3. PANTOMED (PANTOPRAZOLE SODIUM SESQUIHYDRATE) [Concomitant]
     Active Substance: PANTOPRAZOLE SODIUM
     Indication: ABDOMINAL PAIN UPPER
  4. DAFALGAN [Concomitant]
     Active Substance: ACETAMINOPHEN
     Indication: ABDOMINAL PAIN
  5. MITOSYL [Concomitant]
     Indication: ANORECTAL DISCOMFORT
     Dosage: 1 APPLICATION (AS REQUIRED)
     Route: 061
     Dates: start: 20180529
  6. IRINOTECAN [Suspect]
     Active Substance: IRINOTECAN
     Indication: COLORECTAL CANCER METASTATIC
     Dosage: 180 MG/M2 DAILY; DAY 1 OF EACH 14 DAY CYCLE
     Route: 042
     Dates: start: 20181211
  7. LEUCOVORIN. [Concomitant]
     Active Substance: LEUCOVORIN
     Indication: COLORECTAL CANCER METASTATIC
     Dosage: DAY 1 OF EACH 14 DAY CYCLE
     Route: 042
     Dates: start: 20181211
  8. FORLAX [Concomitant]
     Active Substance: POLYETHYLENE GLYCOL 4000
     Indication: CONSTIPATION
     Dosage: 1 BAG (AS REQUIRED), MACROGOL 4000
     Route: 048
     Dates: start: 20180529
  9. MEDICA (CATHEJELL LIDOCAIN) [Concomitant]
     Indication: OROPHARYNGEAL PAIN
     Dosage: 5/1 MG (AS REQUIRED)
     Route: 048
     Dates: start: 20190312
  10. LITICAN [Concomitant]
     Active Substance: ALIZAPRIDE HYDROCHLORIDE
     Indication: NAUSEA
     Dosage: (50 MG, AS REQUIRED)
     Route: 042
     Dates: start: 20190205
  11. BEVACIZUMAB. [Concomitant]
     Active Substance: BEVACIZUMAB
     Indication: COLORECTAL CANCER METASTATIC
     Dosage: 5 MG/KG DAILY; DAY 1 OF EACH 14 DAY CYCLE
     Route: 042
     Dates: start: 20181211
  12. PANTOMED (PANTOPRAZOLE SODIUM SESQUIHYDRATE) [Concomitant]
     Active Substance: PANTOPRAZOLE SODIUM
     Indication: PROPHYLAXIS
     Dosage: 40 MILLIGRAM DAILY;
     Route: 048
     Dates: start: 20180604
  13. LITICAN [Concomitant]
     Active Substance: ALIZAPRIDE HYDROCHLORIDE
     Indication: NAUSEA
     Dosage: (50 MG, AS REQUIRED)
     Route: 048
     Dates: start: 20180524
  14. 5-FLUOROURACIL [Suspect]
     Active Substance: FLUOROURACIL
     Indication: COLORECTAL CANCER METASTATIC
     Dosage: 400 MG/M2 DAILY;
     Route: 040
     Dates: start: 20181211
  15. ZYPREXA [Concomitant]
     Active Substance: OLANZAPINE
     Indication: NAUSEA
     Dosage: 5 MILLIGRAM DAILY;
     Route: 048
     Dates: start: 20190122
  16. DAFALGAN [Concomitant]
     Active Substance: ACETAMINOPHEN
     Indication: HEADACHE
     Dosage: (1 MG, AS REQUIRED)
     Route: 048
     Dates: start: 201805
  17. AMLOR [Concomitant]
     Active Substance: AMLODIPINE BESYLATE
     Indication: HYPERTENSION
     Dosage: 5 MILLIGRAM DAILY;
     Route: 048
     Dates: start: 20190122
  18. FRAXIPARINE [Concomitant]
     Active Substance: NADROPARIN CALCIUM
     Indication: THROMBOSIS
     Dosage: .6 ML DAILY;
     Route: 058
     Dates: start: 20190509, end: 20190521

REACTIONS (1)
  - Dehydration [Recovered/Resolved]

NARRATIVE: CASE EVENT DATE: 20190509
